FAERS Safety Report 23409428 (Version 1)
Quarter: 2024Q1

REPORT INFORMATION
  Report Type: Spontaneous
  Country: US (occurrence: None)
  Receive Date: 20240116
  Receipt Date: 20240116
  Transmission Date: 20240410
  Serious: No
  Sender: FDA-Public Use
  Company Number: None

PATIENT
  Sex: Male

DRUGS (1)
  1. DALFAMPRIDINE [Suspect]
     Active Substance: DALFAMPRIDINE
     Indication: Multiple sclerosis
     Dosage: 10MG TWICE A DAY ORAL
     Route: 048
     Dates: start: 202201

REACTIONS (4)
  - COVID-19 [None]
  - Urinary tract infection [None]
  - Pneumonia [None]
  - Mobility decreased [None]
